FAERS Safety Report 9665694 (Version 2)
Quarter: 2013Q4

REPORT INFORMATION
  Report Type: Spontaneous
  Country: US (occurrence: US)
  Receive Date: 20131104
  Receipt Date: 20131219
  Transmission Date: 20140711
  Serious: Yes (Other)
  Sender: FDA-Public Use
  Company Number: PHEH2013US022909

PATIENT
  Age: 63 Year
  Sex: Male
  Weight: 72 kg

DRUGS (7)
  1. EXJADE [Suspect]
     Indication: ACUTE MYELOID LEUKAEMIA
     Dosage: UNK UKN, QD
     Route: 048
  2. ASPIRIN [Concomitant]
     Indication: CARDIAC DISORDER
     Dosage: 81 MG, DAILY
  3. METOPROLOL [Concomitant]
     Indication: CARDIAC DISORDER
     Dosage: 100 MG, QD
  4. DELTASON [Concomitant]
     Indication: CARDIAC DISORDER
     Dosage: 240 MG, DAILY
  5. TORASEMIDE [Concomitant]
     Indication: CARDIAC DISORDER
     Dosage: 20 MG, UNK
  6. ACICLOVIR [Concomitant]
     Indication: ANTIVIRAL PROPHYLAXIS
     Dosage: 400 MG, Q12H
  7. POSACONAZOLE [Concomitant]
     Indication: ANTIFUNGAL PROPHYLAXIS
     Dosage: 400 MG, Q12H

REACTIONS (4)
  - Nephrotic syndrome [Not Recovered/Not Resolved]
  - Fluid overload [Not Recovered/Not Resolved]
  - Cardiac failure congestive [Recovering/Resolving]
  - Atrial flutter [Recovering/Resolving]
